FAERS Safety Report 19485014 (Version 2)
Quarter: 2021Q3

REPORT INFORMATION
  Report Type: Report from Study
  Country: None (occurrence: BE)
  Receive Date: 20210701
  Receipt Date: 20210703
  Transmission Date: 20211014
  Serious: Yes (Hospitalization)
  Sender: FDA-Public Use
  Company Number: BE-ABBVIE-21K-013-3969791-00

PATIENT
  Sex: Female
  Weight: 51 kg

DRUGS (5)
  1. DUODOPA [Suspect]
     Active Substance: CARBIDOPA\LEVODOPA
     Indication: PARKINSON^S DISEASE
     Route: 050
     Dates: start: 20180327
  2. PROLOPA [Concomitant]
     Active Substance: BENSERAZIDE\LEVODOPA
     Dosage: THREE TIMES
  3. DUODOPA [Suspect]
     Active Substance: CARBIDOPA\LEVODOPA
     Dosage: MD 3.9 ML; CD 4.0 ML/HR DURING 24 HOURS; ED 4.0 ML; NCD 2.3 ML/HR
     Route: 050
     Dates: start: 20201219, end: 20210208
  4. DUODOPA [Suspect]
     Active Substance: CARBIDOPA\LEVODOPA
     Dosage: MD 3.9 ML; CD 4.1 ML/HR DURING 24 HOURS; ED 4.0 ML; NCD 2.3 ML/HR
     Route: 050
     Dates: start: 20210208, end: 202106
  5. PROLOPA [Concomitant]
     Active Substance: BENSERAZIDE\LEVODOPA
     Indication: PRODUCT USED FOR UNKNOWN INDICATION
     Dosage: IN THE MORNING

REACTIONS (4)
  - Stoma site haemorrhage [Unknown]
  - Medical device site papule [Unknown]
  - Stoma site erythema [Unknown]
  - Device dislocation [Not Recovered/Not Resolved]

NARRATIVE: CASE EVENT DATE: 2021
